FAERS Safety Report 12566225 (Version 1)
Quarter: 2016Q3

REPORT INFORMATION
  Report Type: Spontaneous
  Country: FR (occurrence: FR)
  Receive Date: 20160718
  Receipt Date: 20160718
  Transmission Date: 20161109
  Serious: No
  Sender: FDA-Public Use
  Company Number: FR-GUERBET LLC-1055191

PATIENT
  Age: 88 Year
  Sex: Female

DRUGS (5)
  1. RAMIPRIL. [Suspect]
     Active Substance: RAMIPRIL
     Route: 042
     Dates: start: 20160302, end: 20160302
  2. OPTIRAY [Suspect]
     Active Substance: IOVERSOL
     Indication: ANGIOGRAM
     Route: 042
     Dates: start: 20160301, end: 20160301
  3. CLAMOXYL (AMOXICILLIN HYDRATE) [Suspect]
     Active Substance: AMOXICILLIN
     Route: 042
     Dates: start: 20160226, end: 20160307
  4. ACYCLOVIR. [Suspect]
     Active Substance: ACYCLOVIR
     Route: 042
     Dates: start: 20160226, end: 20160303
  5. MIRTAZAPINE. [Suspect]
     Active Substance: MIRTAZAPINE
     Route: 048
     Dates: start: 20160226, end: 20160307

REACTIONS (2)
  - Acute kidney injury [Recovered/Resolved]
  - Haematuria [Recovered/Resolved]

NARRATIVE: CASE EVENT DATE: 20160307
